FAERS Safety Report 15130823 (Version 2)
Quarter: 2018Q3

REPORT INFORMATION
  Report Type: Report from Study
  Country: US (occurrence: US)
  Receive Date: 20180711
  Receipt Date: 20180823
  Transmission Date: 20181010
  Serious: Yes (Hospitalization)
  Sender: FDA-Public Use
  Company Number: US-ACTELION-A-US2018-175012

PATIENT
  Age: 1 Year
  Sex: Male

DRUGS (12)
  1. DIURIL [Concomitant]
     Active Substance: CHLOROTHIAZIDE
  2. SYNAGIS [Concomitant]
     Active Substance: PALIVIZUMAB
  3. ASPIRIN. [Concomitant]
     Active Substance: ASPIRIN
  4. BUMETANIDE. [Concomitant]
     Active Substance: BUMETANIDE
  5. DIGOXIN. [Concomitant]
     Active Substance: DIGOXIN
  6. REVATIO [Concomitant]
     Active Substance: SILDENAFIL CITRATE
  7. TRACLEER [Suspect]
     Active Substance: BOSENTAN
     Dosage: 16 MG, BID
     Route: 048
     Dates: start: 20180630
  8. SPIRONOLACTONE. [Concomitant]
     Active Substance: SPIRONOLACTONE
  9. RANITIDINE. [Concomitant]
     Active Substance: RANITIDINE
  10. METOCLOPRAMIDE. [Concomitant]
     Active Substance: METOCLOPRAMIDE
  11. GAS RELIEF [Concomitant]
     Active Substance: DIMETHICONE
  12. TRACLEER [Suspect]
     Active Substance: BOSENTAN
     Indication: PULMONARY ARTERIAL HYPERTENSION
     Dosage: 32 MG, QD
     Route: 048

REACTIONS (1)
  - Hospitalisation [Not Recovered/Not Resolved]
